FAERS Safety Report 8335943-X (Version None)
Quarter: 2012Q2

REPORT INFORMATION
  Report Type: 
  Country: None (occurrence: None)
  Receive Date: 20120501
  Receipt Date: 20120501
  Transmission Date: 20120825
  Serious: Yes (Hospitalization)
  Sender: FDA-Public Use
  Company Number: None

PATIENT
  Age: 67 Year
  Sex: Female
  Weight: 45.45 kg

DRUGS (6)
  1. STALEVO 100 [Concomitant]
  2. AMANTADINE HCL [Suspect]
     Indication: PARKINSON'S DISEASE
     Dosage: RECENT
  3. CARBIDOPA [Concomitant]
  4. ASPIRIN [Concomitant]
  5. LEXAPRO [Concomitant]
  6. TYLENOL XS [Concomitant]

REACTIONS (2)
  - TOXIC ENCEPHALOPATHY [None]
  - HALLUCINATIONS, MIXED [None]
